FAERS Safety Report 8524423-4 (Version None)
Quarter: 2012Q3

REPORT INFORMATION
  Report Type: 
  Country: None (occurrence: None)
  Receive Date: 20120720
  Receipt Date: 20120713
  Transmission Date: 20120928
  Serious: Yes (Hospitalization)
  Sender: FDA-Public Use
  Company Number: US-B.I. PHARMACEUTICALS,INC./RIDGEFIELD-2012-BP-10904BP

PATIENT
  Sex: Female
  Weight: 80 kg

DRUGS (12)
  1. MULTAQ [Concomitant]
     Dosage: 800 MG
     Route: 048
  2. FUROSEMIDE [Concomitant]
     Dosage: 40 MG
     Route: 048
  3. ZANTAC [Concomitant]
     Dosage: 300 MG
     Route: 048
  4. PRADAXA [Suspect]
     Indication: ANTICOAGULANT THERAPY
     Dosage: 150 MG
     Route: 048
     Dates: start: 20110501, end: 20110709
  5. PRAVASTATIN [Concomitant]
     Dosage: 40 MG
     Route: 048
  6. CILOSTAZOL [Concomitant]
     Dosage: 200 MG
     Route: 048
  7. VITAMIN D [Concomitant]
     Dosage: 1000 U
     Route: 048
  8. VITAMIN D [Concomitant]
     Route: 048
  9. GLIMEPIRIDE [Concomitant]
     Dosage: 4 MG
     Route: 048
  10. LOPRESSOR [Concomitant]
     Dosage: 300 MG
     Route: 048
  11. POTASSIUM CHLORIDE [Concomitant]
     Dosage: 40 MEQ
     Route: 048
  12. PRADAXA [Suspect]
     Indication: ATRIAL FIBRILLATION

REACTIONS (4)
  - GASTROINTESTINAL HAEMORRHAGE [None]
  - DIVERTICULUM INTESTINAL [None]
  - COAGULOPATHY [None]
  - HAEMORRHOIDS [None]
